FAERS Safety Report 4353101-0 (Version None)
Quarter: 2004Q2

REPORT INFORMATION
  Report Type: 
  Country: None (occurrence: None)
  Receive Date: 20040430
  Receipt Date: 20040115
  Transmission Date: 20050107
  Serious: No
  Sender: FDA-Public Use
  Company Number: 204241

PATIENT
  Age: 29 Year
  Sex: Male
  Weight: 77.1 kg

DRUGS (5)
  1. XOLAIR [Suspect]
     Indication: ASTHMA
     Dosage: 150 MG 1/MONTH SUBCUTANEOUS
     Route: 058
     Dates: start: 20031210, end: 20040109
  2. PREDNISONE [Concomitant]
  3. THEO-DUR [Concomitant]
  4. SINGULAIR [Concomitant]
  5. ADVAIR DISKUS [Concomitant]

REACTIONS (1)
  - FATIGUE [None]
